FAERS Safety Report 10169663 (Version 2)
Quarter: 2014Q2

REPORT INFORMATION
  Report Type: Spontaneous
  Country: US (occurrence: SG)
  Receive Date: 20140513
  Receipt Date: 20140528
  Transmission Date: 20141212
  Serious: No
  Sender: FDA-Public Use
  Company Number: SG-FRI-1000066574

PATIENT
  Age: 27 Year
  Sex: Female
  Weight: 67.9 kg

DRUGS (3)
  1. SAPHRIS [Suspect]
     Indication: BIPOLAR DISORDER
     Route: 048
     Dates: start: 20140324, end: 20140325
  2. OLANZAPINE [Concomitant]
     Dates: start: 20140322, end: 20140324
  3. LITHIUM [Concomitant]
     Dates: start: 20140322

REACTIONS (3)
  - Urticaria [Recovered/Resolved]
  - Rash generalised [Recovered/Resolved]
  - Rash [Recovered/Resolved]
